FAERS Safety Report 15705486 (Version 2)
Quarter: 2018Q4

REPORT INFORMATION
  Report Type: Report from Study
  Country: US (occurrence: US)
  Receive Date: 20181210
  Receipt Date: 20181211
  Transmission Date: 20190205
  Serious: Yes (Hospitalization)
  Sender: FDA-Public Use
  Company Number: US-SA-2018SA281915

PATIENT
  Age: 71 Year
  Sex: Male

DRUGS (1)
  1. VANDETANIB. [Suspect]
     Active Substance: VANDETANIB
     Indication: THYROID CANCER
     Dosage: 300 MG, QD
     Route: 048
     Dates: start: 20180925

REACTIONS (10)
  - Dizziness [Unknown]
  - Fatigue [Unknown]
  - Abdominal discomfort [Unknown]
  - Nausea [Unknown]
  - Drug ineffective [Unknown]
  - Asthenia [Unknown]
  - Dyspnoea [Unknown]
  - Hospitalisation [Unknown]
  - Diarrhoea [Unknown]
  - Dehydration [Unknown]
